FAERS Safety Report 5487508-5 (Version None)
Quarter: 2007Q4

REPORT INFORMATION
  Report Type: 
  Country: None (occurrence: None)
  Receive Date: 20071015
  Receipt Date: 20071001
  Transmission Date: 20080405
  Serious: Yes (Death, Hospitalization)
  Sender: FDA-Public Use
  Company Number: FABR-12209

PATIENT
  Age: 48 Year
  Sex: Male
  Weight: 50 kg

DRUGS (1)
  1. FABRAZYME [Suspect]
     Indication: FABRY'S DISEASE
     Dosage: UNITS Q2WKS IV
     Route: 042
     Dates: start: 20030128

REACTIONS (2)
  - CARDIO-RESPIRATORY ARREST [None]
  - PNEUMONIA [None]
